FAERS Safety Report 4977001-8 (Version None)
Quarter: 2006Q2

REPORT INFORMATION
  Report Type: 
  Country: None (occurrence: None)
  Receive Date: 20060412
  Receipt Date: 20060331
  Transmission Date: 20061013
  Serious: Yes (Other)
  Sender: FDA-Public Use
  Company Number: 060040

PATIENT
  Age: 33 Year
  Sex: Female

DRUGS (2)
  1. NULYTELY [Suspect]
     Indication: COLONOSCOPY
     Dosage: 1 GLASS, 1X, PO
     Route: 048
     Dates: start: 20060306
  2. ATENOLOL [Concomitant]

REACTIONS (2)
  - DYSPHAGIA [None]
  - SWOLLEN TONGUE [None]
